FAERS Safety Report 9124070 (Version 2)
Quarter: 2013Q2

REPORT INFORMATION
  Report Type: Spontaneous
  Country: AU (occurrence: AU)
  Receive Date: 20130227
  Receipt Date: 20130402
  Transmission Date: 20140414
  Serious: Yes (Hospitalization)
  Sender: FDA-Public Use
  Company Number: AU-B.I. PHARMACEUTICALS,INC./RIDGEFIELD-2013-AU-00208AU

PATIENT
  Age: 21 Year
  Sex: Female

DRUGS (2)
  1. PRADAXA [Suspect]
     Indication: ANTIPHOSPHOLIPID SYNDROME
  2. PRADAXA [Suspect]
     Dosage: 9350 MG
     Dates: start: 20130219, end: 20130219

REACTIONS (2)
  - Intentional overdose [Recovered/Resolved]
  - Off label use [Unknown]
